FAERS Safety Report 4438833-8 (Version None)
Quarter: 2004Q3

REPORT INFORMATION
  Report Type: 
  Country: None (occurrence: None)
  Receive Date: 20040901
  Receipt Date: 20040830
  Transmission Date: 20050211
  Serious: Yes (Death)
  Sender: FDA-Public Use
  Company Number: US-JNJFOC-20040703288

PATIENT
  Sex: Female
  Weight: 60.33 kg

DRUGS (2)
  1. REMINYL [Suspect]
     Route: 049
     Dates: end: 20040528
  2. RISPERDAL [Concomitant]

REACTIONS (1)
  - CARDIAC FAILURE CONGESTIVE [None]
